FAERS Safety Report 12242400 (Version 1)
Quarter: 2016Q2

REPORT INFORMATION
  Report Type: Report from Study
  Country: US (occurrence: US)
  Receive Date: 20160406
  Receipt Date: 20160406
  Transmission Date: 20160815
  Serious: No
  Sender: FDA-Public Use
  Company Number: US-ABBVIE-16P-163-1535646-00

PATIENT
  Age: 69 Year
  Sex: Male

DRUGS (1)
  1. DUODOPA [Suspect]
     Active Substance: CARBIDOPA\LEVODOPA
     Indication: PRODUCT USED FOR UNKNOWN INDICATION
     Route: 050

REACTIONS (7)
  - Sleep apnoea syndrome [Unknown]
  - Dyskinesia [Unknown]
  - Medical device battery replacement [Unknown]
  - Dysphagia [Unknown]
  - On and off phenomenon [Unknown]
  - Mental impairment [Unknown]
  - Device dislocation [Unknown]

NARRATIVE: CASE EVENT DATE: 201512
